FAERS Safety Report 8770950 (Version 3)
Quarter: 2013Q2

REPORT INFORMATION
  Report Type: Spontaneous
  Country: US (occurrence: US)
  Receive Date: 20120906
  Receipt Date: 20130529
  Transmission Date: 20140414
  Serious: Yes (Hospitalization, Other)
  Sender: FDA-Public Use
  Company Number: US-PFIZER INC-2012216560

PATIENT
  Age: 71 Year
  Sex: Male
  Weight: 95.24 kg

DRUGS (2)
  1. LIPITOR [Suspect]
     Indication: CORONARY ARTERY BYPASS
     Dosage: 40 MG, DAILY
     Dates: start: 1992
  2. VITAMINS NOS [Concomitant]
     Dosage: UNK

REACTIONS (3)
  - Urinary tract infection [Unknown]
  - Cardiac disorder [Unknown]
  - Circumstance or information capable of leading to medication error [Unknown]
